FAERS Safety Report 8861884 (Version 1)
Quarter: 2012Q4

REPORT INFORMATION
  Report Type: 
  Country: US (occurrence: US)
  Receive Date: 20121025
  Receipt Date: 20121025
  Transmission Date: 20130627
  Serious: No
  Sender: FDA-Public Use
  Company Number: US-AMGEN-USASP2012019928

PATIENT
  Age: 45 Year
  Sex: Female

DRUGS (21)
  1. ENBREL [Suspect]
     Indication: RHEUMATOID ARTHRITIS
     Dates: start: 20111229, end: 201202
  2. METHOTREXATE [Concomitant]
     Dosage: 40 UNK, UNK
     Route: 058
  3. ALIGN [Concomitant]
     Dosage: 4 mg, UNK
     Route: 048
  4. HUMIRA [Concomitant]
     Dosage: 40 mg, UNK
     Route: 058
  5. ZYRTEC [Concomitant]
     Dosage: 10 mg, UNK
     Route: 048
  6. PROTONIX [Concomitant]
     Dosage: 20 mg, UNK
     Route: 048
  7. PREDNISONE [Concomitant]
     Dosage: 5 mg, UNK
     Route: 048
  8. SALAGEN [Concomitant]
     Dosage: 7.5 mg, UNK
     Route: 048
  9. RESTASIS [Concomitant]
     Dosage: 0.05 %, UNK
     Route: 047
  10. FLECTOR                            /00372302/ [Concomitant]
     Dosage: 1.3 %, UNK
  11. XANAX XR [Concomitant]
     Dosage: 1 mg, UNK
     Route: 048
  12. SOMA [Concomitant]
     Dosage: 250 mg, UNK
     Route: 048
  13. PLAQUENIL                          /00072602/ [Concomitant]
     Dosage: 200 mg, UNK
     Route: 048
  14. LORTAB                             /00607101/ [Concomitant]
     Dosage: 5 UNK, UNK
     Route: 048
  15. BENTYL [Concomitant]
     Dosage: 20 mg, UNK
     Route: 048
  16. SIMVASTATIN [Concomitant]
     Dosage: 20 mg, UNK
     Route: 048
  17. LUNESTA [Concomitant]
     Dosage: 2 mg, UNK
     Route: 048
  18. FOLIC ACID [Concomitant]
     Dosage: 1 mg, UNK
     Route: 048
  19. CYMBALTA [Concomitant]
     Dosage: 20 mg, UNK
     Route: 048
  20. SULFASALAZIN [Concomitant]
     Dosage: 500 mg, UNK
     Route: 048
  21. FINACEA [Concomitant]
     Dosage: 15 %, UNK

REACTIONS (3)
  - Drug ineffective [Unknown]
  - Injection site pain [Unknown]
  - Injection site pruritus [Unknown]
